FAERS Safety Report 7907430-1 (Version None)
Quarter: 2011Q4

REPORT INFORMATION
  Report Type: 
  Country: None (occurrence: None)
  Receive Date: 20111110
  Receipt Date: 20111101
  Transmission Date: 20120403
  Serious: Yes (Hospitalization, Other)
  Sender: FDA-Public Use
  Company Number: JP-CEPHALON-2011002513

PATIENT
  Sex: Male
  Weight: 60 kg

DRUGS (10)
  1. BROTIZOLAM [Concomitant]
  2. LACTOMIN [Concomitant]
     Dates: start: 20110516, end: 20110520
  3. BENDAMUSTINE HCL [Suspect]
     Route: 042
     Dates: start: 20110308, end: 20110309
  4. BENDAMUSTINE HCL [Suspect]
     Route: 042
     Dates: start: 20110427, end: 20110428
  5. BENDAMUSTINE HCL [Suspect]
     Indication: MANTLE CELL LYMPHOMA
     Route: 042
     Dates: start: 20110215, end: 20110216
  6. MAGNESIUM OXIDE [Concomitant]
  7. FLUCONAZOLE [Concomitant]
     Dates: start: 20110524
  8. RAMOSETRON HYDROCHLORIDE [Concomitant]
     Dates: start: 20110215, end: 20110406
  9. BENDAMUSTINE HCL [Suspect]
     Route: 042
     Dates: start: 20110405, end: 20110406
  10. SODIUM PICOSULFATE [Concomitant]

REACTIONS (5)
  - PNEUMOCYSTIS JIROVECI PNEUMONIA [None]
  - LYMPHOCYTE COUNT DECREASED [None]
  - NEUTROPHIL COUNT DECREASED [None]
  - WHITE BLOOD CELL COUNT DECREASED [None]
  - PNEUMONIA CYTOMEGALOVIRAL [None]
